FAERS Safety Report 4544825-0 (Version None)
Quarter: 2005Q1

REPORT INFORMATION
  Report Type: 
  Country: None (occurrence: None)
  Receive Date: 20050105
  Receipt Date: 20041209
  Transmission Date: 20050727
  Serious: Yes (Hospitalization)
  Sender: FDA-Public Use
  Company Number: FR-MERCK-0412FRA00033

PATIENT
  Sex: Male

DRUGS (3)
  1. VIOXX [Suspect]
     Indication: OSTEOARTHRITIS
     Route: 048
     Dates: start: 19990101, end: 20041004
  2. VIOXX [Suspect]
     Route: 048
     Dates: start: 20041101, end: 20041101
  3. VIOXX [Suspect]
     Route: 048
     Dates: start: 20041101, end: 20041201

REACTIONS (5)
  - ARTHRALGIA [None]
  - DRUG WITHDRAWAL SYNDROME [None]
  - INTESTINAL DILATATION [None]
  - NEUROENDOCRINE CARCINOMA [None]
  - SUBILEUS [None]
